FAERS Safety Report 23082819 (Version 2)
Quarter: 2025Q1

REPORT INFORMATION
  Report Type: Report from Study
  Country: US (occurrence: US)
  Receive Date: 20231019
  Receipt Date: 20250311
  Transmission Date: 20250408
  Serious: Yes (Hospitalization)
  Sender: TAKEDA
  Company Number: US-TAKEDA-2022TUS073638

PATIENT
  Sex: Female
  Weight: 72 kg

DRUGS (3)
  1. HUMAN IMMUNOGLOBULIN G [Suspect]
     Active Substance: HUMAN IMMUNOGLOBULIN G
     Indication: Immunodeficiency common variable
  2. ZINC [Concomitant]
     Active Substance: ZINC
  3. IRON [Concomitant]
     Active Substance: IRON

REACTIONS (2)
  - Mammogram [Unknown]
  - Product dose omission issue [Unknown]
